FAERS Safety Report 20626588 (Version 1)
Quarter: 2022Q1

REPORT INFORMATION
  Report Type: Spontaneous
  Country: US (occurrence: None)
  Receive Date: 20220322
  Receipt Date: 20220322
  Transmission Date: 20220424
  Serious: No
  Sender: FDA-Public Use
  Company Number: None

PATIENT
  Sex: Female

DRUGS (1)
  1. BISOPROLOL [Suspect]
     Active Substance: BISOPROLOL
     Indication: Tachycardia

REACTIONS (5)
  - Product substitution issue [None]
  - Drug ineffective [None]
  - Product coating issue [None]
  - Product physical issue [None]
  - Heart rate increased [None]

NARRATIVE: CASE EVENT DATE: 20220131
